FAERS Safety Report 4448342-8 (Version None)
Quarter: 2004Q3

REPORT INFORMATION
  Report Type: 
  Country: None (occurrence: None)
  Receive Date: 20040913
  Receipt Date: 20040831
  Transmission Date: 20050211
  Serious: Yes (Hospitalization)
  Sender: FDA-Public Use
  Company Number: 2004217852DK

PATIENT
  Age: 70 Year
  Sex: Male

DRUGS (14)
  1. CABERGOLINE [Suspect]
     Indication: PARKINSON'S DISEASE
     Dosage: SEE IMAGE
     Route: 048
     Dates: start: 20010101, end: 20030121
  2. CABERGOLINE [Suspect]
     Indication: PARKINSON'S DISEASE
     Dosage: SEE IMAGE
     Route: 048
     Dates: start: 20030122, end: 20040526
  3. CABERGOLINE [Suspect]
     Indication: PARKINSON'S DISEASE
     Dosage: SEE IMAGE
     Route: 048
     Dates: start: 19990101
  4. CABERGOLINE [Suspect]
     Indication: PARKINSON'S DISEASE
     Dosage: SEE IMAGE
     Route: 048
     Dates: start: 20000101
  5. SINEMET [Concomitant]
  6. MAGNYL [Concomitant]
  7. SELO-ZOK (METOPROLOL SUCCINATE) [Concomitant]
  8. SIMVASTATIN [Concomitant]
  9. CITALOPRAM HYDROBROMIDE [Concomitant]
  10. COZAAR [Concomitant]
  11. RAMIPRIL [Concomitant]
  12. ACETAMINOPHEN [Concomitant]
  13. MANDOLGIN [Concomitant]
  14. SINEMET [Concomitant]

REACTIONS (3)
  - CORONARY ANGIOPLASTY [None]
  - DIZZINESS [None]
  - PULMONARY FIBROSIS [None]
